FAERS Safety Report 8072738-9 (Version None)
Quarter: 2012Q1

REPORT INFORMATION
  Report Type: 
  Country: None (occurrence: None)
  Receive Date: 20120126
  Receipt Date: 20120119
  Transmission Date: 20120608
  Serious: Yes (Other)
  Sender: FDA-Public Use
  Company Number: US-JNJFOC-20120109208

PATIENT
  Age: 50 Year
  Sex: Female

DRUGS (1)
  1. PRECISE EXTRA STRENGTH PAIN RELIEVING CREAM [Suspect]
     Indication: SPONDYLITIS
     Route: 061

REACTIONS (1)
  - APPLICATION SITE BURN [None]
